FAERS Safety Report 10226370 (Version 2)
Quarter: 2014Q2

REPORT INFORMATION
  Report Type: Report from Study
  Country: CA (occurrence: CA)
  Receive Date: 20140609
  Receipt Date: 20140623
  Transmission Date: 20141212
  Serious: Yes (Hospitalization, Other)
  Sender: FDA-Public Use
  Company Number: CA-ABBVIE-14P-028-1243705-00

PATIENT
  Age: 41 Year
  Sex: Female
  Weight: 73.55 kg

DRUGS (10)
  1. HUMIRA [Suspect]
     Indication: CROHN^S DISEASE
     Route: 058
     Dates: start: 20080723, end: 201402
  2. PROTOPIC [Concomitant]
     Indication: PRODUCT USED FOR UNKNOWN INDICATION
     Dosage: AS NEEDED
     Route: 061
     Dates: start: 2012
  3. TARO-CLOBETASOL [Concomitant]
     Indication: PRODUCT USED FOR UNKNOWN INDICATION
     Dosage: AS NEEDED
     Route: 061
     Dates: start: 2012
  4. NALOXONE [Concomitant]
     Indication: MIGRAINE
     Dosage: AS NEEDED
     Route: 048
  5. FLOVENT [Concomitant]
     Indication: PRODUCT USED FOR UNKNOWN INDICATION
     Dosage: AS NEEDED
     Route: 055
     Dates: start: 2012
  6. CIPRALEX [Concomitant]
     Indication: DEPRESSION
     Route: 048
     Dates: start: 2013
  7. CANDESARTAN [Concomitant]
     Indication: HYPERTENSION
     Route: 048
     Dates: start: 2012
  8. TRAZODONE [Concomitant]
     Indication: DEPRESSION
     Route: 048
     Dates: start: 2013
  9. WARFARIN [Concomitant]
     Indication: ANTICOAGULANT THERAPY
     Route: 048
     Dates: start: 2005
  10. CLONAZEPAM [Concomitant]
     Indication: DEPRESSION
     Dosage: UNIT DOSE : 0.5MG TO 1MG: ONCE TO TWICE DAILY
     Route: 048
     Dates: start: 2013

REACTIONS (11)
  - Central nervous system lesion [Not Recovered/Not Resolved]
  - Road traffic accident [Unknown]
  - Lung infection [Unknown]
  - Depression [Recovering/Resolving]
  - Hospitalisation [Unknown]
  - Generalised oedema [Not Recovered/Not Resolved]
  - Psoriasis [Not Recovered/Not Resolved]
  - Skin infection [Not Recovered/Not Resolved]
  - Arthralgia [Not Recovered/Not Resolved]
  - Hypertension [Not Recovered/Not Resolved]
  - Gastrooesophageal reflux disease [Unknown]
